FAERS Safety Report 21615753 (Version 2)
Quarter: 2023Q1

REPORT INFORMATION
  Report Type: Report from Study
  Country: US (occurrence: None)
  Receive Date: 20221118
  Receipt Date: 20230106
  Transmission Date: 20230418
  Serious: Yes (Death, Hospitalization, Other)
  Sender: FDA-Public Use
  Company Number: 2022A382660

PATIENT
  Age: 25386 Day
  Sex: Male
  Weight: 86.2 kg

DRUGS (7)
  1. TEZSPIRE [Suspect]
     Active Substance: TEZEPELUMAB-EKKO
     Indication: Asthma
     Route: 058
     Dates: start: 20221102, end: 20221102
  2. PIPERACILLIN SODIUM\TAZOBACTAM SODIUM [Concomitant]
     Active Substance: PIPERACILLIN SODIUM\TAZOBACTAM SODIUM
     Dosage: 4.5 G/100 ML
  3. FENTANYL [Concomitant]
     Active Substance: FENTANYL
     Dosage: 1000 UG IN SODIUM
  4. ALBUTEROL\IPRATROPIUM BROMIDE [Concomitant]
     Active Substance: ALBUTEROL\IPRATROPIUM BROMIDE
     Dosage: 0.5 MG3 MG(2.5 MG BASE)/3 ML NEBULIZER SOLUTION 3 ML(3 ML NEBULIZATION NEW BAG)
  5. MIDAZOLAM [Concomitant]
     Active Substance: MIDAZOLAM
     Dosage: 100 MG IN SODIUM CHLORIDE 0.9 PERCENTAGE 100 ML INFUSION(2 MG/HR INTRAVENOUS NEW BAG)
  6. SODIUM CHLORIDE [Concomitant]
     Active Substance: SODIUM CHLORIDE
  7. VANCOMYCIN [Concomitant]
     Active Substance: VANCOMYCIN
     Dosage: 1000 MG IN SODIUM CHLORIDE 0.9% 250 ML IVPB (MB+) (1000 MG INTRAVENEOUS NEW BAG)

REACTIONS (5)
  - Death [Fatal]
  - Syncope [Fatal]
  - Asthma [Fatal]
  - Pulse absent [Fatal]
  - Vomiting [Fatal]

NARRATIVE: CASE EVENT DATE: 20221105
